FAERS Safety Report 23034675 (Version 1)
Quarter: 2023Q4

REPORT INFORMATION
  Report Type: Spontaneous
  Country: FR (occurrence: FR)
  Receive Date: 20231005
  Receipt Date: 20231005
  Transmission Date: 20240110
  Serious: Yes (Other)
  Sender: FDA-Public Use
  Company Number: 23_00025710(0)

PATIENT
  Age: 25 Year
  Sex: Male

DRUGS (4)
  1. DEXMEDETOMIDINE HYDROCHLORIDE [Suspect]
     Active Substance: DEXMEDETOMIDINE HYDROCHLORIDE
     Indication: Sedative therapy
     Dosage: 1 MICROGRAM/KILOGRAM
     Route: 065
     Dates: start: 20230817, end: 20230818
  2. DIPRIVAN [Suspect]
     Active Substance: ISOPROPYL ALCOHOL\PROPOFOL
     Indication: Sedative therapy
     Dosage: UNK
     Route: 065
     Dates: start: 20230813, end: 20230819
  3. RISPERIDONE [Suspect]
     Active Substance: RISPERIDONE
     Indication: Product used for unknown indication
     Dosage: 1 MILLIGRAM
     Route: 065
     Dates: start: 20230815, end: 20230819
  4. LOXAPINE SUCCINATE [Suspect]
     Active Substance: LOXAPINE SUCCINATE
     Indication: Dyskinesia
     Dosage: 50 MILLIGRAM
     Route: 065
     Dates: start: 20230818, end: 20230818

REACTIONS (2)
  - Electrocardiogram ST segment elevation [Unknown]
  - Bradycardia [Unknown]

NARRATIVE: CASE EVENT DATE: 20230818
